FAERS Safety Report 21160297 (Version 1)
Quarter: 2022Q3

REPORT INFORMATION
  Report Type: Spontaneous
  Country: US (occurrence: None)
  Receive Date: 20220801
  Receipt Date: 20220801
  Transmission Date: 20221026
  Serious: Yes (Disabling, Other)
  Sender: FDA-Public Use
  Company Number: None

PATIENT
  Age: 45 Year
  Sex: Female
  Weight: 139.5 kg

DRUGS (5)
  1. GABAPENTIN [Suspect]
     Active Substance: GABAPENTIN
     Indication: Neuropathy peripheral
     Dosage: OTHER QUANTITY : 1 TABLET(S);?FREQUENCY : EVERY 6 HOURS;?
     Route: 048
     Dates: start: 20070820
  2. GABAPENTIN [Concomitant]
     Active Substance: GABAPENTIN
  3. OXYCODONE [Concomitant]
     Active Substance: OXYCODONE
  4. HYDROXYZINE [Concomitant]
     Active Substance: HYDROXYZINE HYDROCHLORIDE
  5. VITAMINS [Concomitant]
     Active Substance: VITAMINS

REACTIONS (1)
  - Amnesia [None]
